FAERS Safety Report 8556923-5 (Version None)
Quarter: 2012Q3

REPORT INFORMATION
  Report Type: 
  Country: None (occurrence: None)
  Receive Date: 20120801
  Receipt Date: 20120719
  Transmission Date: 20120928
  Serious: Yes (Other)
  Sender: FDA-Public Use
  Company Number: US-JNJFOC-20120407788

PATIENT
  Sex: Male
  Weight: 114.76 kg

DRUGS (6)
  1. BENADRYL [Concomitant]
     Indication: PREMEDICATION
     Route: 042
  2. TYLENOL (CAPLET) [Concomitant]
     Indication: PREMEDICATION
     Route: 048
  3. REMICADE [Suspect]
     Indication: COLITIS ULCERATIVE
     Route: 042
  4. REMICADE [Suspect]
     Route: 042
     Dates: start: 20120413
  5. SYNTHROID [Concomitant]
     Indication: HYPOTHYROIDISM
     Route: 065
  6. SOLU-MEDROL [Concomitant]
     Indication: PREMEDICATION
     Route: 065

REACTIONS (6)
  - DYSPNOEA [None]
  - FLUSHING [None]
  - TACHYCARDIA [None]
  - COUGH [None]
  - INFUSION RELATED REACTION [None]
  - OXYGEN SATURATION DECREASED [None]
